FAERS Safety Report 5789127-X (Version None)
Quarter: 2008Q2

REPORT INFORMATION
  Report Type: 
  Country: None (occurrence: None)
  Receive Date: 20080626
  Receipt Date: 20080616
  Transmission Date: 20081010
  Serious: Yes (Death, Life-Threatening, Hospitalization, Disabling)
  Sender: FDA-Public Use
  Company Number: US-JNJFOC-20080604760

PATIENT
  Sex: Male

DRUGS (4)
  1. FENTANYL-100 [Suspect]
     Indication: DRUG USE FOR UNKNOWN INDICATION
     Route: 065
  2. TYLENOL W/ CODEINE NO. 3 [Suspect]
     Indication: PROCEDURAL PAIN
     Route: 065
  3. MORPHINE [Suspect]
     Indication: PROCEDURAL PAIN
     Route: 065
  4. VERSED [Suspect]
     Indication: DRUG USE FOR UNKNOWN INDICATION
     Route: 065

REACTIONS (7)
  - ANOXIC ENCEPHALOPATHY [None]
  - APALLIC SYNDROME [None]
  - CARDIO-RESPIRATORY ARREST [None]
  - DEATH [None]
  - EMOTIONAL DISTRESS [None]
  - LOSS OF CONSCIOUSNESS [None]
  - RESPIRATORY ARREST [None]
